FAERS Safety Report 12248896 (Version 2)
Quarter: 2016Q2

REPORT INFORMATION
  Report Type: Spontaneous
  Country: TR (occurrence: TR)
  Receive Date: 20160408
  Receipt Date: 20160427
  Transmission Date: 20160815
  Serious: Yes (Other)
  Sender: FDA-Public Use
  Company Number: TR-NOVOPROD-486630

PATIENT
  Age: 9 Year
  Sex: Female
  Weight: 12 kg

DRUGS (2)
  1. NORDITROPIN [Suspect]
     Active Substance: SOMATROPIN
     Indication: MALNUTRITION
     Dosage: 0.3 MG, QD
     Route: 058
     Dates: start: 201508
  2. NORDITROPIN [Suspect]
     Active Substance: SOMATROPIN
     Indication: MALNUTRITION
     Dosage: UNK
     Route: 058

REACTIONS (1)
  - Hypoglycaemia [Recovered/Resolved]

NARRATIVE: CASE EVENT DATE: 20160330
